FAERS Safety Report 23297888 (Version 2)
Quarter: 2024Q1

REPORT INFORMATION
  Report Type: Report from Study
  Country: US (occurrence: US)
  Receive Date: 20231214
  Receipt Date: 20240221
  Transmission Date: 20240410
  Serious: Yes (Hospitalization, Other)
  Sender: FDA-Public Use
  Company Number: US-OTSUKA PHARMACEUTICAL NETHERLANDS B.V.-AUR-004618

PATIENT
  Sex: Male

DRUGS (3)
  1. LUPKYNIS [Suspect]
     Active Substance: VOCLOSPORIN
     Indication: Lupus nephritis
     Dosage: 7.9 MILLIGRAM, BID
     Route: 048
     Dates: start: 20230805
  2. LUPKYNIS [Suspect]
     Active Substance: VOCLOSPORIN
     Indication: Chronic kidney disease
     Dosage: 7.9 MILLIGRAM, BID
     Route: 048
     Dates: start: 20230805
  3. LUPKYNIS [Suspect]
     Active Substance: VOCLOSPORIN
     Dosage: 15.8MG BID

REACTIONS (5)
  - Anaemia [Unknown]
  - Systemic lupus erythematosus [Unknown]
  - Renal failure [Unknown]
  - Inflammation [Unknown]
  - Off label use [Unknown]
